FAERS Safety Report 7834217-0 (Version None)
Quarter: 2011Q4

REPORT INFORMATION
  Report Type: 
  Country: None (occurrence: None)
  Receive Date: 20111024
  Receipt Date: 20111017
  Transmission Date: 20120403
  Serious: Yes (Other)
  Sender: FDA-Public Use
  Company Number: PHHY2011VE92771

PATIENT
  Sex: Female

DRUGS (9)
  1. OMEPRAZOLE [Concomitant]
     Indication: PROPHYLAXIS AGAINST GASTROINTESTINAL ULCER
     Dosage: 20 MG,
     Route: 048
  2. DICLOFENAC [Concomitant]
     Indication: INFLAMMATION
  3. ZOLEDRONOC ACID [Suspect]
     Indication: OSTEOPOROSIS
     Dosage: 5 MG, YEARLY
     Route: 042
     Dates: start: 20090801
  4. ZOLEDRONOC ACID [Suspect]
     Dosage: 5 MG, YEARLY
     Route: 042
     Dates: start: 20100101
  5. LYRICA [Concomitant]
     Dosage: 150 MG, UNK
     Route: 048
  6. NEURONTIN [Concomitant]
     Indication: NEURALGIA
  7. PROTELOS (STRONTIUM RANELATE) [Concomitant]
     Dosage: 2 G, UNK
     Route: 048
  8. CALCIBON D [Concomitant]
     Dosage: 1500 MG, CALCIUM CITRATE TETRAHYDRATE, VIT D3 200UI
  9. ZOLEDRONOC ACID [Suspect]
     Dosage: 5 MG, YEARLY
     Route: 042
     Dates: start: 20111013

REACTIONS (4)
  - HEPATITIS A [None]
  - DIZZINESS [None]
  - DISCOMFORT [None]
  - INFLUENZA [None]
